FAERS Safety Report 5942532-0 (Version None)
Quarter: 2008Q4

REPORT INFORMATION
  Report Type: 
  Country: None (occurrence: None)
  Receive Date: 20081105
  Receipt Date: 20081027
  Transmission Date: 20090506
  Serious: Yes (Other)
  Sender: FDA-Public Use
  Company Number: BR-PFIZER INC-2008090992

PATIENT
  Sex: Female

DRUGS (1)
  1. DEPO-PROVERA SUSPENSION/INJ [Suspect]
     Indication: CONTRACEPTION
     Route: 030
     Dates: start: 20020101, end: 20020101

REACTIONS (8)
  - ABDOMINAL DISTENSION [None]
  - ANAEMIA [None]
  - ANOREXIA [None]
  - HEADACHE [None]
  - INAPPROPRIATE SCHEDULE OF DRUG ADMINISTRATION [None]
  - INCORRECT DOSE ADMINISTERED [None]
  - NAUSEA [None]
  - TENDONITIS [None]
